FAERS Safety Report 6559058-6 (Version None)
Quarter: 2010Q1

REPORT INFORMATION
  Report Type: 
  Country: None (occurrence: None)
  Receive Date: 20100129
  Receipt Date: 20100118
  Transmission Date: 20100710
  Serious: Yes (Other)
  Sender: FDA-Public Use
  Company Number: US-ELI_LILLY_AND_COMPANY-US200911000951

PATIENT
  Age: 85 Year
  Sex: Female

DRUGS (18)
  1. FORTEO [Suspect]
     Indication: OSTEOPOROSIS
     Dosage: 20 UG, UNKNOWN
     Dates: start: 20071201, end: 20091001
  2. DARVOCET [Concomitant]
  3. FAMVIR [Concomitant]
  4. LASIX [Concomitant]
  5. DECADRON [Concomitant]
  6. M.V.I. [Concomitant]
  7. COMPAZINE [Concomitant]
  8. ATENOLOL [Concomitant]
  9. ASPIRIN [Concomitant]
  10. PLAVIX [Concomitant]
  11. CRESTOR [Concomitant]
  12. BETIMOL [Concomitant]
  13. CALCIUM [Concomitant]
  14. SYNTHROID [Concomitant]
  15. VITAMIN D [Concomitant]
  16. RESTORIL [Concomitant]
  17. ALREX [Concomitant]
  18. LUMIGAN [Concomitant]

REACTIONS (2)
  - BLOOD CREATININE ABNORMAL [None]
  - MULTIPLE MYELOMA [None]
